FAERS Safety Report 9015058 (Version 1)
Quarter: 2013Q1

REPORT INFORMATION
  Report Type: Spontaneous
  Country: US (occurrence: None)
  Receive Date: 20130109
  Receipt Date: 20130109
  Transmission Date: 20140127
  Serious: Yes (Hospitalization)
  Sender: FDA-Public Use
  Company Number: None

PATIENT
  Sex: Male
  Weight: 61.5 kg

DRUGS (7)
  1. PACLITAXEL (TAXOL) [Suspect]
     Dates: end: 20130107
  2. CISPLATIN [Suspect]
     Dates: end: 20130107
  3. LIDOCAINE HCL [Concomitant]
  4. HEPARIN [Concomitant]
  5. JEVITY [Concomitant]
  6. NEXIUM [Concomitant]
  7. THIAMINE [Concomitant]

REACTIONS (6)
  - Hypotension [None]
  - Flushing [None]
  - Tachycardia [None]
  - Unresponsive to stimuli [None]
  - Presyncope [None]
  - Infusion related reaction [None]
